FAERS Safety Report 19881317 (Version 1)
Quarter: 2021Q3

REPORT INFORMATION
  Report Type: Spontaneous
  Country: CN (occurrence: CN)
  Receive Date: 20210924
  Receipt Date: 20210924
  Transmission Date: 20211014
  Serious: Yes (Other)
  Sender: FDA-Public Use
  Company Number: CN-BAYER-2021A215985

PATIENT
  Age: 42 Year
  Sex: Female
  Weight: 48 kg

DRUGS (3)
  1. STIVARGA [Suspect]
     Active Substance: REGORAFENIB
     Indication: SARCOMA
     Dosage: 40 MG, QD
     Route: 048
     Dates: start: 20210903, end: 20210908
  2. GEMCITABINE HYDROCHLORIDE. [Suspect]
     Active Substance: GEMCITABINE HYDROCHLORIDE
     Indication: SARCOMA
     Dosage: 1.2 G, QD
     Route: 041
     Dates: start: 20210903, end: 20210903
  3. CAMRELIZUMAB [Suspect]
     Active Substance: CAMRELIZUMAB
     Indication: SARCOMA
     Dosage: 200 MG, QD
     Route: 041
     Dates: start: 20210906, end: 20210906

REACTIONS (4)
  - Off label use [None]
  - Neutrophil count decreased [Recovering/Resolving]
  - Myelosuppression [Recovering/Resolving]
  - White blood cell count decreased [Recovering/Resolving]

NARRATIVE: CASE EVENT DATE: 20210903
